FAERS Safety Report 19393956 (Version 3)
Quarter: 2021Q3

REPORT INFORMATION
  Report Type: Spontaneous
  Country: JP (occurrence: JP)
  Receive Date: 20210609
  Receipt Date: 20210910
  Transmission Date: 20211014
  Serious: Yes (Death, Other)
  Sender: FDA-Public Use
  Company Number: JP-GLAXOSMITHKLINE-JP2021JPN013517

PATIENT
  Age: 68 Year
  Sex: Male
  Weight: 64.4 kg

DRUGS (22)
  1. STRONGER NEO?MINOPHAGEN C P INJECTION [Concomitant]
     Indication: LUNG DISORDER
     Dosage: 3 DF, 1D
     Dates: start: 20210105, end: 20210112
  2. SOLU?MEDROL [Concomitant]
     Active Substance: METHYLPREDNISOLONE SODIUM SUCCINATE
     Dosage: 1000 MG, 1D
     Dates: start: 20210110, end: 20210115
  3. SAMTIREL [Suspect]
     Active Substance: ATOVAQUONE
     Indication: PNEUMOCYSTIS JIROVECII PNEUMONIA
     Dosage: 5 ML, BID
     Route: 048
     Dates: start: 20210105, end: 20210108
  4. LEVOFLOXACIN TABLETS [Concomitant]
     Active Substance: LEVOFLOXACIN
     Indication: PNEUMONIA
     Dosage: 500 MG, 1D
     Dates: start: 20201228, end: 20210110
  5. DIFLUCAN CAPSULE [Concomitant]
     Dosage: 100 MG, 1D
     Dates: start: 20210108
  6. FUROSEMIDE TABLETS [Concomitant]
     Active Substance: FUROSEMIDE
     Indication: OEDEMA
     Dosage: 40 MG, TID
     Dates: start: 20210102, end: 20210103
  7. FUROSEMIDE TABLETS [Concomitant]
     Active Substance: FUROSEMIDE
     Dosage: 20 MG, TID
     Dates: start: 20210106, end: 20210107
  8. PREDONINE [Concomitant]
     Active Substance: PREDNISOLONE
     Indication: PNEUMOCYSTIS JIROVECII PNEUMONIA
     Dosage: 15 MG IN THE MORNING, 10 MG AT NOON, 5 MG AT EVENING, TID
     Dates: start: 20210105, end: 20210108
  9. BENAMBAX INJECTION [Concomitant]
     Dosage: 240 MG, QD
     Dates: start: 20210106, end: 20210108
  10. BENAMBAX INJECTION [Concomitant]
     Dosage: 200 MG, QD
     Dates: start: 20210103, end: 20210103
  11. FUROSEMIDE TABLETS [Concomitant]
     Active Substance: FUROSEMIDE
     Dosage: 40 MG, TID
     Dates: start: 20210105, end: 20210105
  12. VFEND TABLETS [Concomitant]
     Dosage: 400 MG, 1D
     Dates: start: 20210204, end: 20210205
  13. MENATETRENONE CAPSULES [Concomitant]
     Dosage: 45 MG, 1D
  14. DIFLUCAN CAPSULE [Concomitant]
     Dosage: 100 MG, 1D
     Dates: start: 20201231, end: 20210103
  15. SAMTIREL [Suspect]
     Active Substance: ATOVAQUONE
     Dosage: 1 DF, QD
     Route: 048
     Dates: start: 20210129, end: 20210415
  16. FUROSEMIDE TABLETS [Concomitant]
     Active Substance: FUROSEMIDE
     Dosage: 20 MG, TID
     Dates: start: 20210104, end: 20210104
  17. LINCOMYCIN HYDROCHLORIDE HYDRATE [Concomitant]
     Dosage: 2400 MG, 1D
     Dates: start: 20210109, end: 20210111
  18. FOLIAMIN [Concomitant]
     Active Substance: FOLIC ACID
     Dosage: 3 DF, 1D
     Dates: start: 20210311, end: 20210415
  19. TAKECAB TABLETS [Concomitant]
     Active Substance: VONOPRAZAN FUMARATE
     Dosage: 10 MG, 1D
     Dates: start: 20201231
  20. BENAMBAX INJECTION [Concomitant]
     Indication: PNEUMOCYSTIS JIROVECII PNEUMONIA
     Dosage: 240 UNK
     Dates: start: 20201231, end: 20210102
  21. BENAMBAX INJECTION [Concomitant]
     Dosage: 300 MG, QD
     Dates: start: 20210104, end: 20210105
  22. PRIMAQUINE PHOSPHATE. [Concomitant]
     Active Substance: PRIMAQUINE PHOSPHATE
     Dosage: 2 DF, 1D
     Dates: start: 20210109, end: 20210127

REACTIONS (6)
  - Asthenia [Recovered/Resolved]
  - Malaise [Recovered/Resolved]
  - Polyuria [Recovered/Resolved]
  - Enuresis [Recovered/Resolved]
  - Pollakiuria [Recovered/Resolved]
  - Pneumocystis jirovecii infection [Fatal]

NARRATIVE: CASE EVENT DATE: 20210106
